FAERS Safety Report 6187470-6 (Version None)
Quarter: 2009Q2

REPORT INFORMATION
  Report Type: 
  Country: None (occurrence: None)
  Receive Date: 20090512
  Receipt Date: 20090508
  Transmission Date: 20091009
  Serious: Yes (Hospitalization)
  Sender: FDA-Public Use
  Company Number: US-BRISTOL-MYERS SQUIBB COMPANY-14618771

PATIENT
  Age: 48 Year
  Sex: Male
  Weight: 70 kg

DRUGS (2)
  1. CISPLATIN [Suspect]
     Indication: PHARYNGEAL CANCER STAGE UNSPECIFIED
     Dosage: THERAPY STARTED ON 20JAN09
     Dates: start: 20090218, end: 20090218
  2. RADIATION THERAPY [Suspect]
     Indication: PHARYNGEAL CANCER STAGE UNSPECIFIED
     Dosage: THERAPY STARTED ON 20JAN09, 1 DF = 70GY NO OF FRACTION:35,NO OF ELASPSED:43 EX BEAM,IMRT
     Dates: start: 20090303, end: 20090303

REACTIONS (1)
  - LOCALISED OEDEMA [None]
